FAERS Safety Report 7369361-8 (Version None)
Quarter: 2011Q1

REPORT INFORMATION
  Report Type: 
  Country: None (occurrence: None)
  Receive Date: 20110323
  Receipt Date: 20110318
  Transmission Date: 20110831
  Serious: Yes (Death)
  Sender: FDA-Public Use
  Company Number: FR-ROCHE-766572

PATIENT
  Sex: Male

DRUGS (3)
  1. CURACNE [Suspect]
     Indication: ACNE
     Route: 048
     Dates: start: 20041020, end: 20050420
  2. ACCUTANE [Suspect]
     Indication: ACNE
     Dosage: STOP DATE: AFTER 2MONTHS
     Route: 048
     Dates: start: 20050802
  3. CURACNE [Suspect]
     Dosage: STOP: END OF OCTOBER 2005.
     Route: 048
     Dates: start: 20051008, end: 20051001

REACTIONS (1)
  - COMPLETED SUICIDE [None]
